FAERS Safety Report 5080874-4 (Version None)
Quarter: 2006Q3

REPORT INFORMATION
  Report Type: 
  Country: None (occurrence: None)
  Receive Date: 20060811
  Receipt Date: 20060801
  Transmission Date: 20061208
  Serious: Yes (Other)
  Sender: FDA-Public Use
  Company Number: 2006095074

PATIENT
  Age: 57 Year
  Sex: Female
  Weight: 59.8748 kg

DRUGS (3)
  1. DILANTIN [Suspect]
     Indication: PARTIAL SEIZURES
     Dosage: 300 MG (300 MG, 1 IN 1 D)
  2. PLAVIX [Concomitant]
  3. AMITRIPTYLINE                       (AMITRIPTYLINE) [Concomitant]

REACTIONS (5)
  - ANTICONVULSANT DRUG LEVEL INCREASED [None]
  - DISEASE PROGRESSION [None]
  - DRUG INEFFECTIVE [None]
  - DRUG INTOLERANCE [None]
  - THROMBOANGIITIS OBLITERANS [None]
